FAERS Safety Report 4360573-4 (Version None)
Quarter: 2004Q2

REPORT INFORMATION
  Report Type: 
  Country: None (occurrence: None)
  Receive Date: 20040519
  Receipt Date: 20040514
  Transmission Date: 20050107
  Serious: Yes (Other)
  Sender: FDA-Public Use
  Company Number: DE-ROCHE-367917

PATIENT
  Age: 80 Year
  Sex: Female
  Weight: 88.2 kg

DRUGS (1)
  1. XELODA [Suspect]
     Indication: BREAST CANCER
     Route: 048
     Dates: start: 20030916, end: 20031124

REACTIONS (1)
  - CEREBROVASCULAR ACCIDENT [None]
